FAERS Safety Report 5961154-9 (Version None)
Quarter: 2008Q4

REPORT INFORMATION
  Report Type: 
  Country: None (occurrence: None)
  Receive Date: 20081121
  Receipt Date: 20081110
  Transmission Date: 20090506
  Serious: Yes (Hospitalization, Other)
  Sender: FDA-Public Use
  Company Number: DE-ELI_LILLY_AND_COMPANY-DE200811002071

PATIENT
  Age: 25 Year
  Sex: Male

DRUGS (7)
  1. FLUOXETINE HCL [Suspect]
     Indication: DISSOCIATIVE DISORDER
     Dosage: 40 MG, UNK
     Route: 048
     Dates: start: 20080201, end: 20080226
  2. HALDOL [Concomitant]
     Dosage: 5 MG, UNK
     Route: 048
     Dates: start: 20080303, end: 20080303
  3. HALDOL [Concomitant]
     Dosage: 7.5 MG, UNK
     Route: 048
     Dates: start: 20080304, end: 20080304
  4. HALDOL [Concomitant]
     Dosage: 10 MG, DAILY (1/D)
     Route: 048
     Dates: start: 20080305, end: 20080307
  5. LEPONEX [Concomitant]
     Dosage: 200 MG, UNK
     Route: 048
     Dates: start: 20080201, end: 20080304
  6. LEPONEX [Concomitant]
     Dosage: 100 MG, DAILY (1/D)
     Route: 048
     Dates: start: 20080305, end: 20080306
  7. RISPERDAL [Concomitant]
     Dosage: 6 MG, UNK

REACTIONS (5)
  - DISEASE RECURRENCE [None]
  - FALL [None]
  - GAIT DISTURBANCE [None]
  - HOSPITALISATION [None]
  - NEUROLEPTIC MALIGNANT SYNDROME [None]
